FAERS Safety Report 9247982 (Version 1)
Quarter: 2013Q2

REPORT INFORMATION
  Report Type: Spontaneous
  Country: US (occurrence: US)
  Receive Date: 20130423
  Receipt Date: 20130423
  Transmission Date: 20140414
  Serious: Yes (Other)
  Sender: FDA-Public Use
  Company Number: US-BRISTOL-MYERS SQUIBB COMPANY-18783050

PATIENT
  Sex: Female
  Weight: 58.05 kg

DRUGS (6)
  1. COUMADIN [Suspect]
  2. CARDIZEM [Concomitant]
  3. SOTALOL [Concomitant]
  4. SYNTHROID [Concomitant]
  5. NEXIUM [Concomitant]
  6. PREMARIN [Concomitant]

REACTIONS (5)
  - Spinal fracture [Unknown]
  - Dizziness [Unknown]
  - Fall [Unknown]
  - Vomiting [Unknown]
  - Diarrhoea [Unknown]
